FAERS Safety Report 19883875 (Version 2)
Quarter: 2021Q4

REPORT INFORMATION
  Report Type: Report from Study
  Country: GB (occurrence: GB)
  Receive Date: 20210927
  Receipt Date: 20211202
  Transmission Date: 20220303
  Serious: Yes (Other)
  Sender: FDA-Public Use
  Company Number: GB-NOVARTISPH-NVSC2021GB214778

PATIENT
  Sex: Male

DRUGS (1)
  1. ERELZI [Suspect]
     Active Substance: ETANERCEPT-SZZS
     Indication: Psoriatic arthropathy
     Dosage: 50 MG, QW, AS DIRECTED
     Route: 065
     Dates: start: 20210628

REACTIONS (5)
  - Lower respiratory tract infection [Unknown]
  - COVID-19 [Unknown]
  - Illness [Unknown]
  - Arthritis [Unknown]
  - Product dose omission issue [Unknown]
